FAERS Safety Report 10244175 (Version 1)
Quarter: 2014Q2

REPORT INFORMATION
  Report Type: Spontaneous
  Country: US (occurrence: US)
  Receive Date: 20140618
  Receipt Date: 20140618
  Transmission Date: 20141212
  Serious: No
  Sender: FDA-Public Use
  Company Number: US-GLAXOSMITHKLINE-A1057483A

PATIENT
  Age: 93 Year
  Sex: Male

DRUGS (10)
  1. LAMICTAL [Suspect]
     Indication: CONVULSION
     Dosage: 25MG ALTERNATE DAYS
     Route: 048
     Dates: start: 20130929
  2. TOPROL [Concomitant]
  3. LIPITOR [Concomitant]
  4. PLAVIX [Concomitant]
  5. PRILOSEC [Concomitant]
  6. VITAMIN B12 [Concomitant]
  7. OCUVITE [Concomitant]
  8. BABY ASPIRIN [Concomitant]
  9. STOOL SOFTENER [Concomitant]
  10. TRILEPTAL [Concomitant]

REACTIONS (3)
  - Headache [Unknown]
  - Speech disorder [Unknown]
  - Social avoidant behaviour [Unknown]
